FAERS Safety Report 15131153 (Version 2)
Quarter: 2018Q3

REPORT INFORMATION
  Report Type: Report from Study
  Country: VN (occurrence: VN)
  Receive Date: 20180711
  Receipt Date: 20180720
  Transmission Date: 20181010
  Serious: Yes (Hospitalization)
  Sender: FDA-Public Use
  Company Number: VN-ASTRAZENECA-2018SE87542

PATIENT
  Age: 22907 Day
  Sex: Female

DRUGS (7)
  1. AZD6140 [Suspect]
     Active Substance: TICAGRELOR
     Indication: CARDIOVASCULAR EVENT PROPHYLAXIS
     Route: 048
     Dates: start: 20180702
  2. ATORVASTATIN [Concomitant]
     Active Substance: ATORVASTATIN
     Indication: VASODILATATION
     Route: 048
     Dates: start: 20180702
  3. NIVALIN [Concomitant]
     Active Substance: GALANTAMINE HYDROBROMIDE
     Indication: ISCHAEMIC STROKE
     Route: 030
     Dates: start: 20180703, end: 20180710
  4. ASPIRIN. [Concomitant]
     Active Substance: ASPIRIN
     Indication: ISCHAEMIC STROKE
     Route: 048
     Dates: start: 20180702, end: 20180702
  5. CEREBROLYSIN [Concomitant]
     Active Substance: CEREBROLYSIN
     Indication: ISCHAEMIC STROKE
     Route: 042
     Dates: start: 20180703, end: 20180710
  6. DIAZEPAM. [Concomitant]
     Active Substance: DIAZEPAM
     Indication: SEDATIVE THERAPY
     Route: 048
     Dates: start: 20180702, end: 20180710
  7. ASPIRIN. [Concomitant]
     Active Substance: ASPIRIN
     Indication: ISCHAEMIC STROKE
     Route: 048
     Dates: start: 20180703

REACTIONS (1)
  - Pituitary tumour benign [Recovering/Resolving]

NARRATIVE: CASE EVENT DATE: 20180704
